FAERS Safety Report 14387599 (Version 2)
Quarter: 2019Q2

REPORT INFORMATION
  Report Type: Spontaneous
  Country: US (occurrence: US)
  Receive Date: 20180115
  Receipt Date: 20190624
  Transmission Date: 20190711
  Serious: Yes (Other)
  Sender: FDA-Public Use
  Company Number: US-SA-2017SA194140

PATIENT
  Age: 43 Year
  Sex: Female
  Weight: 73.9 kg

DRUGS (2)
  1. TAXOTERE [Suspect]
     Active Substance: DOCETAXEL
     Dosage: 168 MG,QCY
     Route: 042
     Dates: start: 20000801, end: 20000801
  2. TAXOTERE [Suspect]
     Active Substance: DOCETAXEL
     Indication: BREAST CANCER FEMALE
     Dosage: 168 MG,QCY
     Route: 042
     Dates: start: 20000711, end: 20000711

REACTIONS (2)
  - Alopecia [Not Recovered/Not Resolved]
  - Psychological trauma [Unknown]

NARRATIVE: CASE EVENT DATE: 20000711
